FAERS Safety Report 5056885-1 (Version None)
Quarter: 2006Q3

REPORT INFORMATION
  Report Type: 
  Country: None (occurrence: None)
  Receive Date: 20060721
  Receipt Date: 20060713
  Transmission Date: 20061208
  Serious: Yes (Hospitalization)
  Sender: FDA-Public Use
  Company Number: US-JNJFOC-20060703581

PATIENT
  Age: 70 Year
  Sex: Female
  Weight: 70.31 kg

DRUGS (6)
  1. FENTANYL TRANSDERMAL SYSTEM [Suspect]
     Indication: PAIN
     Route: 062
  2. NEURONTIN [Concomitant]
     Indication: PAIN
     Route: 048
  3. CORTEF [Concomitant]
     Route: 048
  4. CARDIZEM [Concomitant]
     Route: 048
  5. EDECRIN [Concomitant]
     Route: 048
  6. ZOLOFT [Concomitant]
     Indication: DEPRESSION
     Route: 048

REACTIONS (3)
  - APPLICATION SITE DERMATITIS [None]
  - PAIN IN EXTREMITY [None]
  - THROMBOSIS [None]
